FAERS Safety Report 20839891 (Version 1)
Quarter: 2022Q2

REPORT INFORMATION
  Report Type: Spontaneous
  Country: US (occurrence: None)
  Receive Date: 20220516
  Receipt Date: 20220516
  Transmission Date: 20220721
  Serious: Yes (Hospitalization)
  Sender: FDA-Public Use
  Company Number: None

PATIENT
  Sex: Female

DRUGS (23)
  1. SIROLIMUS [Suspect]
     Active Substance: SIROLIMUS
     Indication: Cystinosis
     Dosage: FREQUENCY : AS DIRECTED;  TAKE 4 TABLETS (4MG TOTAL) BY MOUTH EVERY OTHER DAY ALTERNATE DOSE EVERY O
     Route: 048
     Dates: start: 20200825
  2. SIROLIMUS [Suspect]
     Active Substance: SIROLIMUS
     Dosage: FREQUENCY : AS DIRECTED;?
     Route: 048
  3. AMLODIPINE [Concomitant]
     Active Substance: AMLODIPINE BESYLATE
  4. BACTRIM DS [Concomitant]
     Active Substance: SULFAMETHOXAZOLE\TRIMETHOPRIM
  5. CABERGOLINE [Concomitant]
  6. CALCITRIOL [Concomitant]
     Active Substance: CALCITRIOL
  7. CINACALCET [Concomitant]
     Active Substance: CINACALCET
  8. CYSTARAN [Concomitant]
     Active Substance: CYSTEAMINE HYDROCHLORIDE
  9. CYSTRAN SOL [Concomitant]
  10. EPOGEN [Concomitant]
     Active Substance: ERYTHROPOIETIN
  11. FEXOFENADINE HCL [Concomitant]
     Active Substance: FEXOFENADINE HYDROCHLORIDE
  12. FOLIC ACID [Concomitant]
     Active Substance: FOLIC ACID
  13. IRON [Concomitant]
     Active Substance: IRON
  14. KP VITAMIN D [Concomitant]
  15. LEVOTHYROXINE [Concomitant]
     Active Substance: LEVOTHYROXINE
  16. LISINOPRIL [Concomitant]
     Active Substance: LISINOPRIL
  17. MYCOPHENOLATE MOFETIL [Concomitant]
     Active Substance: MYCOPHENOLATE MOFETIL
  18. RANITIDINE [Concomitant]
     Active Substance: RANITIDINE
  19. RAPAMUNE [Concomitant]
     Active Substance: SIROLIMUS
  20. RENAX [Concomitant]
     Active Substance: .ALPHA.-TOCOPHEROL SUCCINATE, D-\ASCORBIC ACID\BIOTIN\CALCIUM PANTOTHENATE\CYANOCOBALAMIN CO-57\FOLI
  21. SENSIPAR [Concomitant]
     Active Substance: CINACALCET HYDROCHLORIDE
  22. SODIUM BICAR [Concomitant]
  23. VITAMIN D [Suspect]
     Active Substance: VITAMIN D NOS

REACTIONS (1)
  - Kidney transplant rejection [None]
